FAERS Safety Report 18494885 (Version 1)
Quarter: 2020Q4

REPORT INFORMATION
  Report Type: Spontaneous
  Country: BE (occurrence: BE)
  Receive Date: 20201112
  Receipt Date: 20201112
  Transmission Date: 20210114
  Serious: Yes (Other)
  Sender: FDA-Public Use
  Company Number: NVSC2020BE298906

PATIENT
  Sex: Male

DRUGS (1)
  1. AMOXICILLINE [Suspect]
     Active Substance: AMOXICILLIN
     Indication: PHARYNGITIS
     Dosage: UNK
     Route: 065

REACTIONS (8)
  - Nasopharyngitis [Unknown]
  - Hyperhidrosis [Unknown]
  - Hypopnoea [Unknown]
  - Chills [Unknown]
  - Respiratory distress [Unknown]
  - Abdominal pain upper [Unknown]
  - Abdominal pain [Unknown]
  - Feeling hot [Unknown]
